FAERS Safety Report 6305627-8 (Version None)
Quarter: 2009Q3

REPORT INFORMATION
  Report Type: 
  Country: None (occurrence: None)
  Receive Date: 20090806
  Receipt Date: 20090724
  Transmission Date: 20100115
  Serious: Yes (Hospitalization)
  Sender: FDA-Public Use
  Company Number: 014605

PATIENT
  Sex: Female

DRUGS (1)
  1. PRIALT [Suspect]
     Dosage: , INTRATHECAL
     Route: 037

REACTIONS (3)
  - MIGRAINE [None]
  - MUSCULOSKELETAL STIFFNESS [None]
  - URINARY TRACT INFECTION [None]
